FAERS Safety Report 11591187 (Version 1)
Quarter: 2015Q4

REPORT INFORMATION
  Report Type: Spontaneous
  Country: AU (occurrence: AU)
  Receive Date: 20151004
  Receipt Date: 20151004
  Transmission Date: 20160304
  Serious: Yes (Other)
  Sender: FDA-Public Use
  Company Number: PHHY2015AU116695

PATIENT
  Age: 63 Year
  Sex: Male

DRUGS (1)
  1. HALOPERIDOL. [Suspect]
     Active Substance: HALOPERIDOL
     Indication: PSYCHOTIC DISORDER
     Dosage: 2 MG, QD
     Route: 065

REACTIONS (2)
  - Parkinsonism [Recovering/Resolving]
  - Disinhibition [Recovering/Resolving]
